FAERS Safety Report 4431792-3 (Version None)
Quarter: 2004Q3

REPORT INFORMATION
  Report Type: 
  Country: None (occurrence: None)
  Receive Date: 20040818
  Receipt Date: 20040802
  Transmission Date: 20050211
  Serious: Yes (Other)
  Sender: FDA-Public Use
  Company Number: USA040874252

PATIENT
  Age: 74 Year
  Sex: Female
  Weight: 86 kg

DRUGS (8)
  1. HUMALOG [Suspect]
     Dates: start: 20040617
  2. HUMULIN N [Suspect]
     Dosage: 13 U/1 AT BEDTIME
     Dates: start: 20040301, end: 20040727
  3. EVISTA [Concomitant]
  4. GLUCOPHAGE [Concomitant]
  5. MAGNESIUM [Concomitant]
  6. VITAMIN D [Concomitant]
  7. CALCIUM [Concomitant]
  8. MOBIC [Concomitant]

REACTIONS (8)
  - AMNESIA [None]
  - BLOOD GLUCOSE DECREASED [None]
  - HEADACHE [None]
  - MEDICATION ERROR [None]
  - PHARMACEUTICAL PRODUCT COMPLAINT [None]
  - ROAD TRAFFIC ACCIDENT [None]
  - TREMOR [None]
  - WEIGHT INCREASED [None]
